FAERS Safety Report 9216148 (Version 3)
Quarter: 2013Q4

REPORT INFORMATION
  Report Type: Spontaneous
  Country: IT (occurrence: IT)
  Receive Date: 20130408
  Receipt Date: 20131021
  Transmission Date: 20140711
  Serious: Yes (Hospitalization)
  Sender: FDA-Public Use
  Company Number: IT-MYLANLABS-2013S1006976

PATIENT
  Age: 60 Year
  Sex: Male

DRUGS (12)
  1. METFORMIN [Suspect]
     Indication: DIABETES MELLITUS
     Route: 048
     Dates: start: 20130309, end: 20130309
  2. DEPAKIN [Suspect]
     Indication: PSYCHOTIC DISORDER
     Route: 048
     Dates: start: 20130309, end: 20130309
  3. SEROQUEL [Concomitant]
     Indication: PRODUCT USED FOR UNKNOWN INDICATION
  4. TRIATEC [Concomitant]
     Indication: PRODUCT USED FOR UNKNOWN INDICATION
  5. LASIX [Concomitant]
     Indication: PRODUCT USED FOR UNKNOWN INDICATION
  6. ZYLORIC [Concomitant]
     Indication: PRODUCT USED FOR UNKNOWN INDICATION
  7. SINVACOR [Concomitant]
     Indication: PRODUCT USED FOR UNKNOWN INDICATION
  8. SELOKEN [Concomitant]
     Indication: PRODUCT USED FOR UNKNOWN INDICATION
  9. CARDIOASPIRIN [Concomitant]
     Indication: PRODUCT USED FOR UNKNOWN INDICATION
  10. ESAPENT [Concomitant]
     Indication: PRODUCT USED FOR UNKNOWN INDICATION
  11. TAVOR [Concomitant]
     Indication: PRODUCT USED FOR UNKNOWN INDICATION
  12. SOFARGEN [Concomitant]
     Indication: PRODUCT USED FOR UNKNOWN INDICATION

REACTIONS (4)
  - Drug abuse [Recovered/Resolved]
  - Intentional overdose [Recovered/Resolved]
  - Toxicity to various agents [Recovered/Resolved]
  - Agitation [Recovered/Resolved]
